FAERS Safety Report 7555572-5 (Version None)
Quarter: 2011Q2

REPORT INFORMATION
  Report Type: 
  Country: None (occurrence: None)
  Receive Date: 20110617
  Receipt Date: 20060518
  Transmission Date: 20111010
  Serious: Yes (Other)
  Sender: FDA-Public Use
  Company Number: PHHO2005MX13513

PATIENT
  Sex: Male

DRUGS (2)
  1. CLOZAPINE [Suspect]
     Dosage: 300 MG, QD
  2. CLOZAPINE [Suspect]
     Indication: SCHIZOPHRENIA
     Dosage: 400 MG, QD
     Dates: start: 20040603

REACTIONS (8)
  - NEUTROPHIL COUNT ABNORMAL [None]
  - GRANULOMA [None]
  - LYMPHOCYTE COUNT ABNORMAL [None]
  - FATIGUE [None]
  - POLYCYTHAEMIA [None]
  - LYMPHOCYTIC LEUKAEMIA [None]
  - VENA CAVA THROMBOSIS [None]
  - WHITE BLOOD CELL COUNT ABNORMAL [None]
